FAERS Safety Report 20696865 (Version 1)
Quarter: 2022Q2

REPORT INFORMATION
  Report Type: Spontaneous
  Country: US (occurrence: US)
  Receive Date: 20220411
  Receipt Date: 20220411
  Transmission Date: 20220720
  Serious: No
  Sender: FDA-Public Use
  Company Number: US-Adamas_Pharmaceuticals-USA-POI1235202100061

PATIENT
  Age: 65 Year
  Sex: Female

DRUGS (4)
  1. OSMOLEX ER [Suspect]
     Active Substance: AMANTADINE
     Indication: Parkinson^s disease
     Dates: start: 20210409, end: 20210430
  2. OSMOLEX ER [Suspect]
     Active Substance: AMANTADINE
     Dates: start: 20210501, end: 20210513
  3. OSMOLEX ER [Suspect]
     Active Substance: AMANTADINE
     Dates: start: 20210514
  4. RYTARY [Concomitant]
     Active Substance: CARBIDOPA\LEVODOPA
     Indication: Product used for unknown indication

REACTIONS (7)
  - Vision blurred [Recovered/Resolved]
  - Fall [Recovered/Resolved]
  - Dizziness [Not Recovered/Not Resolved]
  - Balance disorder [Recovered/Resolved with Sequelae]
  - Asthenia [Unknown]
  - Malaise [Recovered/Resolved]
  - Therapeutic product effect decreased [Unknown]

NARRATIVE: CASE EVENT DATE: 20210501
